FAERS Safety Report 9099383 (Version 1)
Quarter: 2013Q1

REPORT INFORMATION
  Report Type: Spontaneous
  Country: US (occurrence: US)
  Receive Date: 20130214
  Receipt Date: 20130214
  Transmission Date: 20140127
  Serious: No
  Sender: FDA-Public Use
  Company Number: US-BAYER-2013-017691

PATIENT
  Age: 15 Year
  Sex: Female

DRUGS (1)
  1. BEYAZ [Suspect]
     Indication: MENOMETRORRHAGIA

REACTIONS (2)
  - Off label use [None]
  - Blood cholesterol increased [None]
